FAERS Safety Report 8193581-6 (Version None)
Quarter: 2012Q1

REPORT INFORMATION
  Report Type: 
  Country: None (occurrence: None)
  Receive Date: 20120308
  Receipt Date: 20120223
  Transmission Date: 20120608
  Serious: Yes (Other)
  Sender: FDA-Public Use
  Company Number: US-ROCHE-1042775

PATIENT
  Sex: Female
  Weight: 70.37 kg

DRUGS (6)
  1. RITUXIMAB [Suspect]
     Indication: PSORIATIC ARTHROPATHY
     Dates: start: 20060101, end: 20110101
  2. REMICADE [Suspect]
     Indication: PSORIATIC ARTHROPATHY
     Route: 042
     Dates: start: 20020601, end: 20040101
  3. ETANERCEPT [Suspect]
     Indication: PSORIATIC ARTHROPATHY
     Dates: start: 20040101
  4. ABATACEPT [Suspect]
     Indication: PSORIATIC ARTHROPATHY
     Dates: start: 20060101, end: 20060101
  5. COD LIVER OIL [Concomitant]
     Dates: start: 20000101
  6. ADALIMUMAB [Suspect]
     Indication: PSORIATIC ARTHROPATHY
     Dates: start: 20040901

REACTIONS (12)
  - BENIGN OVARIAN TUMOUR [None]
  - RASH [None]
  - CONTUSION [None]
  - BENIGN UTERINE NEOPLASM [None]
  - SWELLING [None]
  - LYMPH GLAND INFECTION [None]
  - ASTHENIA [None]
  - DRY EYE [None]
  - CHEST DISCOMFORT [None]
  - HYPERSENSITIVITY [None]
  - PALPITATIONS [None]
  - MUSCULOSKELETAL STIFFNESS [None]
